FAERS Safety Report 18503640 (Version 2)
Quarter: 2020Q4

REPORT INFORMATION
  Report Type: Spontaneous
  Country: CN (occurrence: CN)
  Receive Date: 20201113
  Receipt Date: 20201119
  Transmission Date: 20210114
  Serious: Yes (Hospitalization, Other)
  Sender: FDA-Public Use
  Company Number: CN-ASTRAZENECA-2020SF44436

PATIENT
  Age: 918 Month
  Sex: Male
  Weight: 57.5 kg

DRUGS (2)
  1. IRESSA [Suspect]
     Active Substance: GEFITINIB
     Indication: NON-SMALL CELL LUNG CANCER
     Route: 048
  2. IRESSA [Suspect]
     Active Substance: GEFITINIB
     Indication: NON-SMALL CELL LUNG CANCER
     Route: 048

REACTIONS (6)
  - Metastases to central nervous system [Unknown]
  - Dizziness [Recovered/Resolved]
  - Drug resistance [Unknown]
  - Vomiting [Recovered/Resolved]
  - Metastases to meninges [Unknown]
  - Gene mutation [Unknown]

NARRATIVE: CASE EVENT DATE: 202007
